FAERS Safety Report 8570770-X (Version None)
Quarter: 2012Q3

REPORT INFORMATION
  Report Type: 
  Country: None (occurrence: None)
  Receive Date: 20120805
  Receipt Date: 20120727
  Transmission Date: 20120928
  Serious: Yes (Hospitalization, Other)
  Sender: FDA-Public Use
  Company Number: US-009507513-1207USA012365

PATIENT

DRUGS (20)
  1. SYMBICORT [Suspect]
     Dosage: 2 DF, BID
     Route: 055
  2. VITAMIN B (UNSPECIFIED) [Concomitant]
  3. CODEINE PHOSPHATE (+) GUAIFENESIN (+) PSEUDOEPHEDRINE HYDROCHLORIDE [Concomitant]
     Dosage: 5 ML, TID
     Route: 048
  4. LEVALBUTEROL HCL [Concomitant]
     Dosage: 0.63MG/3ML, EVERY 3 HOURS, PRN
  5. ZETIA [Concomitant]
     Route: 048
  6. FENOFIBRATE [Concomitant]
     Route: 048
  7. LEVOTHYROXINE SODIUM [Concomitant]
     Route: 048
  8. ACETAMINOPHEN [Concomitant]
     Route: 048
  9. LEVALBUTEROL HCL [Concomitant]
     Dosage: UNK
  10. CHOLECALCIFEROL [Concomitant]
     Route: 048
  11. SERTRALINE HYDROCHLORIDE [Concomitant]
     Route: 048
  12. CALCIUM (UNSPECIFIED) [Concomitant]
     Route: 048
  13. DIPHENHYDRAMINE HCL [Concomitant]
     Route: 048
  14. PRINIVIL [Suspect]
     Route: 048
  15. OMEGA-3-ACID ETHYL ESTERS [Concomitant]
     Route: 048
  16. LOPERAMIDE HCL [Concomitant]
     Route: 048
  17. ASPIRIN [Concomitant]
     Route: 048
  18. PLAVIX [Concomitant]
     Route: 048
  19. ATENOLOL [Suspect]
     Route: 048
  20. DEXILANT [Concomitant]
     Route: 048

REACTIONS (19)
  - GASTROOESOPHAGEAL REFLUX DISEASE [None]
  - SPINAL OSTEOARTHRITIS [None]
  - PELVIC PAIN [None]
  - CHRONIC OBSTRUCTIVE PULMONARY DISEASE [None]
  - RHINITIS ALLERGIC [None]
  - BRONCHITIS CHRONIC [None]
  - HYPERLIPIDAEMIA [None]
  - ESSENTIAL HYPERTENSION [None]
  - CIRCUMSTANCE OR INFORMATION CAPABLE OF LEADING TO MEDICATION ERROR [None]
  - ANGINA PECTORIS [None]
  - CHOLELITHIASIS [None]
  - HYPOTHYROIDISM [None]
  - CYSTOCELE [None]
  - CORONARY ARTERY DISEASE [None]
  - DEPRESSION [None]
  - DIVERTICULUM [None]
  - ARTHROPATHY [None]
  - BRONCHOPNEUMONIA [None]
  - VITAMIN D DEFICIENCY [None]
